FAERS Safety Report 9766485 (Version 1)
Quarter: 2013Q4

REPORT INFORMATION
  Report Type: Spontaneous
  Country: GB (occurrence: GB)
  Receive Date: 20131217
  Receipt Date: 20131217
  Transmission Date: 20140711
  Serious: Yes (Disabling, Other)
  Sender: FDA-Public Use
  Company Number: GB-DRREDDYS-GER/UKI/13/0036342

PATIENT
  Age: 66 Year
  Sex: Female
  Weight: 57 kg

DRUGS (5)
  1. SERTRALINE [Suspect]
     Indication: ANXIETY
     Route: 048
     Dates: start: 20130708
  2. SERTRALINE [Suspect]
     Indication: DEPRESSION
  3. OMEGA-3-ACIDS [Concomitant]
     Indication: MENTAL DISORDER
     Route: 048
  4. ALOE VERA [Concomitant]
     Indication: MENTAL DISORDER
  5. SIMILASE [Concomitant]
     Indication: MENTAL DISORDER

REACTIONS (2)
  - Headache [Recovering/Resolving]
  - Hallucination, visual [Recovering/Resolving]
